FAERS Safety Report 8504376-5 (Version None)
Quarter: 2012Q3

REPORT INFORMATION
  Report Type: 
  Country: None (occurrence: None)
  Receive Date: 20120711
  Receipt Date: 20120706
  Transmission Date: 20120928
  Serious: Yes (Death)
  Sender: FDA-Public Use
  Company Number: US-CELGENEUS-163-21880-12063365

PATIENT
  Sex: Male
  Weight: 83.264 kg

DRUGS (18)
  1. DEXAMETHASONE [Concomitant]
     Dosage: 40 MILLIGRAM
     Route: 048
  2. POTASSIUM CHLORIDE [Concomitant]
     Route: 065
  3. AMBIEN [Concomitant]
     Indication: SLEEP DISORDER
     Dosage: 5 MILLIGRAM
     Route: 048
  4. ATIVAN [Concomitant]
     Dosage: .5 MILLIGRAM
     Route: 048
  5. MIRALAX [Concomitant]
     Dosage: 17 GRAM
     Route: 048
  6. MILK OF MAGNESIA TAB [Concomitant]
     Dosage: 400MG/5ML
     Route: 048
  7. SENNA LAX [Concomitant]
     Dosage: 17.2 MILLIGRAM
     Route: 048
  8. VICODIN [Concomitant]
     Route: 048
  9. CELEXA [Concomitant]
     Dosage: 20 MILLIGRAM
     Route: 048
  10. WARFARIN SODIUM [Concomitant]
     Dosage: 4MG Q TUES. AND THURS., 3MG THE OTHER DAYS OF WEEK.
     Route: 048
  11. REVLIMID [Suspect]
     Indication: MULTIPLE MYELOMA
     Dosage: 25 MILLIGRAM
     Route: 048
     Dates: start: 20101012, end: 20101201
  12. DEXAMETHASONE [Concomitant]
     Dosage: 10 MILLIGRAM
     Route: 048
  13. MS CONTIN [Concomitant]
     Dosage: 30 MILLIGRAM
     Route: 048
  14. COMPAZINE OR PLACEBO [Concomitant]
     Dosage: 10 MILLIGRAM
     Route: 048
  15. FLEXERIL [Concomitant]
     Dosage: 10 MILLIGRAM
     Route: 048
  16. EYE-VITE [Concomitant]
     Route: 048
  17. LIPITOR [Concomitant]
     Dosage: 10 MILLIGRAM
     Route: 048
  18. HYDROCHLOROTHIAZIDE [Concomitant]
     Dosage: 25 MILLIGRAM
     Route: 048

REACTIONS (1)
  - DEATH [None]
